FAERS Safety Report 9322632 (Version 2)
Quarter: 2013Q4

REPORT INFORMATION
  Report Type: Spontaneous
  Country: GR (occurrence: GR)
  Receive Date: 20130531
  Receipt Date: 20131114
  Transmission Date: 20140711
  Serious: Yes (Hospitalization)
  Sender: FDA-Public Use
  Company Number: GR-B.I. PHARMACEUTICALS,INC./RIDGEFIELD-2013-BI-14550GB

PATIENT
  Age: 80 Year
  Sex: Male

DRUGS (4)
  1. PRADAXA [Suspect]
     Indication: ATRIAL FIBRILLATION
     Dosage: 220 MG
     Route: 048
     Dates: start: 201303
  2. SEVIKAR (OLMESARTAN+AMLODIPINE) [Concomitant]
     Indication: HYPERTENSION
     Route: 048
  3. EUCREAS (METFORMIN HYDROCLORIDE + VALIDAGLIPTIN) [Concomitant]
     Indication: DIABETES MELLITUS
     Route: 048
  4. SOLOSA (GLIMEPIRIDE) [Concomitant]
     Indication: DIABETES MELLITUS
     Route: 048

REACTIONS (1)
  - Embolism [Recovered/Resolved]
